FAERS Safety Report 13117566 (Version 2)
Quarter: 2017Q1

REPORT INFORMATION
  Report Type: Spontaneous
  Country: FR (occurrence: FR)
  Receive Date: 20170116
  Receipt Date: 20170131
  Transmission Date: 20170428
  Serious: Yes (Other)
  Sender: FDA-Public Use
  Company Number: PHHY2017FR003646

PATIENT
  Age: 32 Year
  Sex: Female

DRUGS (1)
  1. CLARITHROMYCIN. [Suspect]
     Active Substance: CLARITHROMYCIN
     Indication: PNEUMONIA
     Dosage: 500 MG, BID
     Route: 065

REACTIONS (1)
  - Serum sickness-like reaction [Recovered/Resolved]
